FAERS Safety Report 7423290-X (Version None)
Quarter: 2011Q2

REPORT INFORMATION
  Report Type: 
  Country: None (occurrence: None)
  Receive Date: 20110419
  Receipt Date: 20101109
  Transmission Date: 20111010
  Serious: Yes (Hospitalization, Other)
  Sender: FDA-Public Use
  Company Number: US-BAYER-201030309NA

PATIENT
  Age: 41 Year
  Sex: Female
  Weight: 78.458 kg

DRUGS (5)
  1. LOVAZA [Concomitant]
     Dosage: UNK
     Dates: end: 20080808
  2. FISH OIL [Concomitant]
  3. OCELLA [Suspect]
     Indication: ACNE
     Dosage: UNK
     Dates: start: 20080701, end: 20080801
  4. LOVAZA [Concomitant]
  5. YASMIN [Suspect]
     Indication: ACNE
     Dosage: UNK UNK, UNK
     Route: 048
     Dates: start: 20050701, end: 20080601

REACTIONS (2)
  - DEEP VEIN THROMBOSIS [None]
  - PULMONARY EMBOLISM [None]
